FAERS Safety Report 15397773 (Version 1)
Quarter: 2018Q3

REPORT INFORMATION
  Report Type: Spontaneous
  Country: SK (occurrence: SK)
  Receive Date: 20180918
  Receipt Date: 20180918
  Transmission Date: 20181010
  Serious: Yes (Hospitalization)
  Sender: FDA-Public Use
  Company Number: SK-BAYER-2018-172114

PATIENT
  Sex: Female
  Weight: 73 kg

DRUGS (1)
  1. ULTRAVIST [Suspect]
     Active Substance: IOPROMIDE
     Indication: POSITRON EMISSION TOMOGRAM
     Dosage: 90 ML, UNK
     Route: 042
     Dates: start: 20180912, end: 20180912

REACTIONS (5)
  - Rash generalised [None]
  - Vomiting [None]
  - Hypotension [None]
  - Urinary incontinence [None]
  - Syncope [None]

NARRATIVE: CASE EVENT DATE: 20180912
